FAERS Safety Report 10563033 (Version 1)
Quarter: 2014Q4

REPORT INFORMATION
  Report Type: Spontaneous
  Country: US (occurrence: None)
  Receive Date: 20141103
  Receipt Date: 20141103
  Transmission Date: 20150529
  Serious: No
  Sender: FDA-Public Use
  Company Number: None

PATIENT
  Age: 49 Year
  Sex: Male

DRUGS (2)
  1. DOXEPIN [Suspect]
     Active Substance: DOXEPIN
     Indication: DEPRESSION
     Route: 048
     Dates: start: 20140822
  2. COCAINE [Concomitant]
     Active Substance: COCAINE

REACTIONS (8)
  - Substance abuse [None]
  - Intentional overdose [None]
  - Loss of consciousness [None]
  - Toxicity to various agents [None]
  - Depression [None]
  - Acute kidney injury [None]
  - Blood creatine phosphokinase increased [None]
  - Lethargy [None]

NARRATIVE: CASE EVENT DATE: 20140822
